FAERS Safety Report 7402348-5 (Version None)
Quarter: 2011Q2

REPORT INFORMATION
  Report Type: 
  Country: None (occurrence: None)
  Receive Date: 20110408
  Receipt Date: 20110401
  Transmission Date: 20111010
  Serious: Yes (Hospitalization)
  Sender: FDA-Public Use
  Company Number: US-TEVA-274387USA

PATIENT
  Sex: Female

DRUGS (1)
  1. BACLOFEN [Suspect]
     Route: 048

REACTIONS (3)
  - PYREXIA [None]
  - DEVICE RELATED SEPSIS [None]
  - DEVICE RELATED INFECTION [None]
